FAERS Safety Report 20445208 (Version 1)
Quarter: 2022Q1

REPORT INFORMATION
  Report Type: Spontaneous
  Country: GR (occurrence: GR)
  Receive Date: 20220208
  Receipt Date: 20220208
  Transmission Date: 20220423
  Serious: Yes (Other)
  Sender: FDA-Public Use
  Company Number: GR-ABBVIE-22K-066-4268907-00

PATIENT
  Age: 57 Year
  Sex: Male
  Weight: 80 kg

DRUGS (8)
  1. VALPROATE SODIUM [Suspect]
     Active Substance: VALPROATE SODIUM
     Indication: Bipolar disorder
     Route: 048
     Dates: start: 20130822, end: 20130901
  2. OLANZAPINE [Suspect]
     Active Substance: OLANZAPINE
     Indication: Bipolar disorder
     Route: 048
     Dates: start: 20130819, end: 20130906
  3. LEVOMEPROMAZINE [Concomitant]
     Active Substance: LEVOMEPROMAZINE
     Indication: Product used for unknown indication
     Dates: start: 20130822
  4. TAVOR [Concomitant]
     Indication: Product used for unknown indication
     Dates: start: 20130819, end: 20130821
  5. CLONAZEPAM [Concomitant]
     Active Substance: CLONAZEPAM
     Indication: Product used for unknown indication
     Dates: start: 20130822
  6. ZUCLOPENTHIXOL [Concomitant]
     Active Substance: ZUCLOPENTHIXOL
     Indication: Product used for unknown indication
     Dates: start: 20130827
  7. AMISULPRIDE [Concomitant]
     Active Substance: AMISULPRIDE
     Indication: Product used for unknown indication
     Dates: start: 20130908
  8. MILITHIN [Concomitant]
     Indication: Product used for unknown indication
     Dates: start: 20130901

REACTIONS (4)
  - Hyperbilirubinaemia [Not Recovered/Not Resolved]
  - Hypertriglyceridaemia [Not Recovered/Not Resolved]
  - Hypercholesterolaemia [Not Recovered/Not Resolved]
  - Transaminases increased [Recovering/Resolving]

NARRATIVE: CASE EVENT DATE: 20180901
